FAERS Safety Report 7238202-1 (Version None)
Quarter: 2011Q1

REPORT INFORMATION
  Report Type: 
  Country: None (occurrence: None)
  Receive Date: 20110121
  Receipt Date: 20110120
  Transmission Date: 20110831
  Serious: No
  Sender: FDA-Public Use
  Company Number: US-PFIZER INC-2009311604

PATIENT
  Age: 53 Year
  Sex: Female
  Weight: 58.957 kg

DRUGS (6)
  1. ZYPREXA [Suspect]
  2. GEODON [Suspect]
  3. CENTRUM SILVER [Suspect]
     Indication: NUTRITIONAL SUPPORT
     Dosage: 1 DF, 1X/DAY
     Route: 048
     Dates: start: 20091210, end: 20091213
  4. AMANTADINE HCL [Suspect]
  5. CONCERTA [Suspect]
  6. KLONOPIN [Suspect]

REACTIONS (1)
  - DIZZINESS [None]
